FAERS Safety Report 11550102 (Version 1)
Quarter: 2015Q3

REPORT INFORMATION
  Report Type: Spontaneous
  Country: US (occurrence: US)
  Receive Date: 20150903
  Receipt Date: 20150903
  Transmission Date: 20151125
  Serious: No
  Sender: FDA-Public Use
  Company Number: US-ELI_LILLY_AND_COMPANY-US201302000397

PATIENT
  Age: 56 Year
  Sex: Male
  Weight: 122.45 kg

DRUGS (1)
  1. HUMALOG [Suspect]
     Active Substance: INSULIN LISPRO
     Dosage: UNK
     Route: 058

REACTIONS (4)
  - Abdominal distension [Unknown]
  - Blood glucose increased [Not Recovered/Not Resolved]
  - Infusion site pain [Not Recovered/Not Resolved]
  - Infusion site irritation [Not Recovered/Not Resolved]

NARRATIVE: CASE EVENT DATE: 20130118
